FAERS Safety Report 5879663-X (Version None)
Quarter: 2008Q3

REPORT INFORMATION
  Report Type: 
  Country: None (occurrence: None)
  Receive Date: 20080912
  Receipt Date: 20080903
  Transmission Date: 20090109
  Serious: Yes (Hospitalization)
  Sender: FDA-Public Use
  Company Number: JP-MERCK-0809USA00963

PATIENT
  Age: 83 Year
  Sex: Female

DRUGS (10)
  1. SINGULAIR [Suspect]
     Route: 048
     Dates: start: 20070101, end: 20080814
  2. MUCODYNE [Suspect]
     Route: 048
     Dates: start: 20070101, end: 20080814
  3. URSO 250 [Suspect]
     Route: 048
     Dates: start: 20070101, end: 20080814
  4. ASPIRIN [Suspect]
     Route: 048
     Dates: start: 20070101, end: 20080814
  5. RENIVEZE [Suspect]
     Route: 048
     Dates: start: 20070101, end: 20080814
  6. UNIPHYL LA [Suspect]
     Route: 048
     Dates: start: 20070101, end: 20080814
  7. CLARITIN [Suspect]
     Route: 048
     Dates: start: 20070101, end: 20080814
  8. PULMICORT-100 [Concomitant]
     Dates: start: 20070101
  9. INTAL [Suspect]
     Dates: start: 20070101, end: 20080814
  10. KETOPROFEN [Suspect]
     Route: 048
     Dates: start: 20070101, end: 20080814

REACTIONS (2)
  - NEPHRITIS INTERSTITIAL [None]
  - VASCULITIS [None]
